FAERS Safety Report 14681747 (Version 2)
Quarter: 2018Q1

REPORT INFORMATION
  Report Type: Spontaneous
  Country: None (occurrence: US)
  Receive Date: 20180326
  Receipt Date: 20180326
  Transmission Date: 20180509
  Serious: No
  Sender: FDA-Public Use
  Company Number: US-VIFOR (INTERNATIONAL) INC.-VIT-2018-02106

PATIENT
  Sex: Female
  Weight: 107 kg

DRUGS (2)
  1. VELTASSA [Suspect]
     Active Substance: PATIROMER
     Indication: BLOOD POTASSIUM INCREASED
  2. VELTASSA [Suspect]
     Active Substance: PATIROMER
     Dates: start: 20171019

REACTIONS (3)
  - Drug intolerance [Recovering/Resolving]
  - Malaise [Recovering/Resolving]
  - Drug ineffective [Not Recovered/Not Resolved]
